FAERS Safety Report 7307198-6 (Version None)
Quarter: 2011Q1

REPORT INFORMATION
  Report Type: 
  Country: None (occurrence: None)
  Receive Date: 20110120
  Receipt Date: 20100615
  Transmission Date: 20110831
  Serious: Yes (Hospitalization, Disabling)
  Sender: FDA-Public Use
  Company Number: WAES 1006USA02430

PATIENT
  Age: 76 Year
  Sex: Female

DRUGS (6)
  1. REQUIP [Concomitant]
  2. LIPITOR [Concomitant]
  3. PROTONA [Concomitant]
  4. ACETAMINOPHEN [Concomitant]
  5. SINEMET [Concomitant]
  6. INVANZ [Suspect]
     Indication: ARTHRITIS BACTERIAL
     Dosage: 1 GM/DAILY
     Dates: start: 20100527

REACTIONS (1)
  - MENTAL STATUS CHANGES [None]
